FAERS Safety Report 4895004-9 (Version None)
Quarter: 2006Q1

REPORT INFORMATION
  Report Type: 
  Country: None (occurrence: None)
  Receive Date: 20060130
  Receipt Date: 20050819
  Transmission Date: 20060701
  Serious: No
  Sender: FDA-Public Use
  Company Number: US-BRISTOL-MYERS SQUIBB COMPANY-13084231

PATIENT
  Sex: Male

DRUGS (3)
  1. METFORMIN HCL [Suspect]
  2. GLYBURIDE [Suspect]
  3. HUMULIN 70/30 [Suspect]
     Dosage: 15 IN AM AND 25 PM

REACTIONS (3)
  - DIABETES MELLITUS INADEQUATE CONTROL [None]
  - FATIGUE [None]
  - SOMNOLENCE [None]
